FAERS Safety Report 8816308 (Version 1)
Quarter: 2012Q4

REPORT INFORMATION
  Report Type: Spontaneous
  Country: US (occurrence: None)
  Receive Date: 20120927
  Receipt Date: 20120927
  Transmission Date: 20130627
  Serious: Yes (Hospitalization)
  Sender: FDA-Public Use
  Company Number: None

PATIENT
  Age: 10 Year
  Sex: Female
  Weight: 54.43 kg

DRUGS (2)
  1. FLUDROCORTISONE [Suspect]
     Indication: SYNCOPE VASOVAGAL
     Dosage: 1 tablet
     Route: 048
     Dates: start: 20120703, end: 20120812
  2. MIDODRINE [Suspect]
     Dosage: 1.5 tablet, 3 times daily, po
     Route: 048
     Dates: start: 20120711, end: 20120812

REACTIONS (4)
  - Chest pain [None]
  - Hallucination [None]
  - Drug ineffective [None]
  - Convulsion [None]
